FAERS Safety Report 6913412-9 (Version None)
Quarter: 2010Q3

REPORT INFORMATION
  Report Type: 
  Country: None (occurrence: None)
  Receive Date: 20100809
  Receipt Date: 20100728
  Transmission Date: 20110219
  Serious: Yes (Other)
  Sender: FDA-Public Use
  Company Number: US-JNJFOC-20100708923

PATIENT
  Sex: Female

DRUGS (4)
  1. MONISTAT 1 COMBINATION PACK [Suspect]
     Route: 067
  2. MONISTAT 1 COMBINATION PACK [Suspect]
     Indication: PRODUCT USED FOR UNKNOWN INDICATION
     Route: 067
  3. MONISTAT 1 COMBINATION PACK [Suspect]
     Route: 061
  4. MONISTAT 1 COMBINATION PACK [Suspect]
     Route: 061

REACTIONS (5)
  - HYPERSENSITIVITY [None]
  - LOSS OF CONSCIOUSNESS [None]
  - VAGINAL SWELLING [None]
  - VULVOVAGINAL BURNING SENSATION [None]
  - VULVOVAGINAL PAIN [None]
